FAERS Safety Report 15269837 (Version 3)
Quarter: 2019Q1

REPORT INFORMATION
  Report Type: Spontaneous
  Country: SK (occurrence: SK)
  Receive Date: 20180813
  Receipt Date: 20190301
  Transmission Date: 20190417
  Serious: Yes (Hospitalization, Other)
  Sender: FDA-Public Use
  Company Number: SK-MYLANLABS-2018M1061206

PATIENT
  Age: 76 Year
  Sex: Female

DRUGS (4)
  1. ASA [Suspect]
     Active Substance: ASPIRIN
     Dosage: STANDARD DAILY DOSE
     Route: 048
  2. CLOPIDOGREL [Suspect]
     Active Substance: CLOPIDOGREL BISULFATE
     Indication: ISCHAEMIA
     Dosage: 75 MG, QD,
     Route: 048
  3. ASA [Suspect]
     Active Substance: ASPIRIN
     Indication: PERIPHERAL ISCHAEMIA
     Dosage: 100 MG, QD
     Route: 048
  4. CLOPIDOGREL [Suspect]
     Active Substance: CLOPIDOGREL BISULFATE
     Dosage: STANDARD DAILY DOSE
     Route: 048

REACTIONS (3)
  - Peripheral ischaemia [Recovered/Resolved]
  - Drug resistance [Unknown]
  - Drug ineffective [Recovered/Resolved]
